FAERS Safety Report 8078380-8 (Version None)
Quarter: 2012Q1

REPORT INFORMATION
  Report Type: 
  Country: None (occurrence: None)
  Receive Date: 20120123
  Receipt Date: 20120112
  Transmission Date: 20120608
  Serious: Yes (Hospitalization)
  Sender: FDA-Public Use
  Company Number: 2012IN000045

PATIENT
  Age: 69 Year
  Sex: Female

DRUGS (5)
  1. BLOOD PRESSURE MEDICATION [Concomitant]
  2. CALCIUM SUPPLEMENT (CALCIUM) [Concomitant]
  3. JAKAFI [Suspect]
     Indication: SPLENOMEGALY
     Dosage: 10 MG, BID, ORAL
     Route: 048
     Dates: start: 20120105
  4. ULORIC [Concomitant]
  5. DIABETIC MEDICATION [Concomitant]

REACTIONS (2)
  - SPEECH DISORDER [None]
  - COORDINATION ABNORMAL [None]
